FAERS Safety Report 6285025-6 (Version None)
Quarter: 2009Q3

REPORT INFORMATION
  Report Type: 
  Country: None (occurrence: None)
  Receive Date: 20090723
  Receipt Date: 20090713
  Transmission Date: 20100115
  Serious: No
  Sender: FDA-Public Use
  Company Number: 2009-200588-NL

PATIENT

DRUGS (5)
  1. DANAPAROID SODIUM [Suspect]
     Indication: PROPHYLAXIS
  2. DANAPAROID SODIUM [Suspect]
     Indication: VENOOCCLUSIVE DISEASE
  3. URSODIOL [Concomitant]
  4. TOCOPHERYL ACETATE [Concomitant]
  5. EICOSAPENTAENOIC ACID [Concomitant]

REACTIONS (1)
  - POST PROCEDURAL HAEMORRHAGE [None]
